FAERS Safety Report 6047740-9 (Version None)
Quarter: 2009Q1

REPORT INFORMATION
  Report Type: 
  Country: None (occurrence: None)
  Receive Date: 20090123
  Receipt Date: 20090114
  Transmission Date: 20090719
  Serious: Yes (Other)
  Sender: FDA-Public Use
  Company Number: CA-JNJFOC-20090103494

PATIENT
  Sex: Female
  Weight: 154 kg

DRUGS (2)
  1. REMICADE [Suspect]
     Dosage: 5TH DOSE
     Route: 042
  2. REMICADE [Suspect]
     Indication: CROHN'S DISEASE
     Dosage: DOSE 1 TO 4
     Route: 042

REACTIONS (3)
  - HEPATITIS C [None]
  - OEDEMA PERIPHERAL [None]
  - RENAL MASS [None]
